FAERS Safety Report 10592333 (Version 1)
Quarter: 2014Q4

REPORT INFORMATION
  Report Type: Spontaneous
  Country: US (occurrence: None)
  Receive Date: 20141117
  Receipt Date: 20141117
  Transmission Date: 20150529
  Serious: Yes (Disabling, Other)
  Sender: FDA-Public Use
  Company Number: 2014-20694

PATIENT
  Age: 86 Year
  Sex: Male

DRUGS (1)
  1. EYLEA [Suspect]
     Active Substance: AFLIBERCEPT
     Indication: AGE-RELATED MACULAR DEGENERATION
     Dosage: Q4-6WEEK 11TH INJECTION
     Route: 031
     Dates: start: 20141029, end: 20141029

REACTIONS (5)
  - Anterior chamber cell [None]
  - Eye pain [None]
  - Vision blurred [None]
  - Blindness unilateral [None]
  - Eye inflammation [None]

NARRATIVE: CASE EVENT DATE: 20141105
